FAERS Safety Report 7190864-3 (Version None)
Quarter: 2010Q4

REPORT INFORMATION
  Report Type: 
  Country: None (occurrence: None)
  Receive Date: 20101221
  Receipt Date: 20101221
  Transmission Date: 20110411
  Serious: Yes (Other)
  Sender: FDA-Public Use
  Company Number: None

PATIENT
  Age: 21 Year
  Sex: Male
  Weight: 122.4712 kg

DRUGS (3)
  1. SUBOXONE [Suspect]
     Indication: REVERSAL OF OPIATE ACTIVITY
     Dosage: 1 FILM -8MG / 2MG- ONCE SL
     Route: 060
     Dates: start: 20101215, end: 20101215
  2. ZANTAC [Concomitant]
  3. CLARITIN-D 24 HOUR [Concomitant]

REACTIONS (6)
  - DRY SKIN [None]
  - FEELING HOT [None]
  - HYPERHIDROSIS [None]
  - PRURITUS [None]
  - RASH [None]
  - SKIN SWELLING [None]
